FAERS Safety Report 19881423 (Version 3)
Quarter: 2021Q4

REPORT INFORMATION
  Report Type: Report from Study
  Country: DE (occurrence: DE)
  Receive Date: 20210924
  Receipt Date: 20211030
  Transmission Date: 20220303
  Serious: Yes (Death, Hospitalization, Other)
  Sender: FDA-Public Use
  Company Number: DE-ROCHE-2455626

PATIENT
  Age: 69 Year
  Sex: Male

DRUGS (20)
  1. CARBOPLATIN [Suspect]
     Active Substance: CARBOPLATIN
     Indication: Non-small cell lung cancer
     Dosage: 594 MG/MIN*ML
     Route: 042
     Dates: start: 20191010
  2. CARBOPLATIN [Suspect]
     Active Substance: CARBOPLATIN
     Dosage: 97 MG/MIN*ML ,LAST DOSE PRIOR TO EVENT : 594 MG/MIN*ML ON 17/OCT/2019 ,DATE OF LAST DOSE TAKEN PRIOR
     Route: 042
     Dates: start: 20191010, end: 20191017
  3. PACLITAXEL [Suspect]
     Active Substance: PACLITAXEL
     Indication: Non-small cell lung cancer
     Dosage: 194MG/M2
     Route: 042
     Dates: start: 20191010
  4. PACLITAXEL [Suspect]
     Active Substance: PACLITAXEL
     Dosage: UNIT DOSE :450 MG/M2 ,LAST DOSE PRIOR TO EVENT : 194 MG/M*2 ON 17/OCT/2019?DATE OF LAST DOSE TAKEN P
     Route: 042
     Dates: start: 20191010
  5. ATEZOLIZUMAB [Suspect]
     Active Substance: ATEZOLIZUMAB
     Indication: Non-small cell lung cancer
     Dosage: UNIT DOSE :1200 MG ,LAST DOSE PRIOR TO EVENT :1200 MG ,DATE OF LAST DOSE TAKEN PRIOR TO EVENT 02/JAN
     Route: 042
     Dates: start: 20191010
  6. GRANULOCYTE COLONY-STIMULATING FACTOR NOS [Concomitant]
     Active Substance: GRANULOCYTE COLONY-STIMULATING FACTOR NOS
     Dosage: 30 IU
     Route: 058
     Dates: start: 20191022, end: 20191024
  7. PALONOSETRON [Concomitant]
     Active Substance: PALONOSETRON
     Dosage: 5 MG
     Route: 042
     Dates: start: 20191010
  8. NETUPITANT [Concomitant]
     Active Substance: NETUPITANT
     Dosage: 300 MG
     Route: 042
     Dates: start: 20191010
  9. RAMIPRIL [Concomitant]
     Active Substance: RAMIPRIL
     Indication: Hypertension
     Dosage: 25 MG
     Route: 048
     Dates: start: 20190902
  10. ASPIRIN [Concomitant]
     Active Substance: ASPIRIN
     Indication: Iliac artery stenosis
     Dosage: 100 MG
     Route: 048
     Dates: start: 20190902
  11. PIPERACILLIN [Concomitant]
     Active Substance: PIPERACILLIN
     Route: 048
     Dates: start: 20191023, end: 20191028
  12. TORSEMIDE [Concomitant]
     Active Substance: TORSEMIDE
     Indication: Emphysema
     Dosage: 10 MG
     Route: 048
     Dates: start: 20190902
  13. ATORVASTATIN [Concomitant]
     Active Substance: ATORVASTATIN
     Indication: Iliac artery stenosis
     Dosage: 20 MG
     Route: 048
     Dates: start: 20190902
  14. TAZOBACTAM [Concomitant]
     Active Substance: TAZOBACTAM
     Route: 048
     Dates: start: 20191023, end: 20191028
  15. PEGFILGRASTIM [Concomitant]
     Active Substance: PEGFILGRASTIM
     Dosage: 6 MG
     Route: 058
     Dates: start: 20191219, end: 20191219
  16. BISOPROLOL [Concomitant]
     Active Substance: BISOPROLOL
     Indication: Hypertension
     Dosage: 25 MG
     Route: 048
     Dates: start: 20190902
  17. ALLOPURINOL [Concomitant]
     Active Substance: ALLOPURINOL
     Indication: Hyperuricaemia
     Dosage: 100 MG
     Route: 048
     Dates: start: 20190902
  18. PANTOPRAZOLE [Concomitant]
     Active Substance: PANTOPRAZOLE
     Dosage: 80 MG
     Route: 048
     Dates: start: 20200130
  19. DEXAMETHASONE [Concomitant]
     Active Substance: DEXAMETHASONE
     Dosage: 8 MG
     Route: 042
     Dates: start: 20191010
  20. GRANISETRON [Concomitant]
     Active Substance: GRANISETRON
     Dosage: 1 MG
     Route: 042
     Dates: start: 20191010

REACTIONS (15)
  - Autoimmune colitis [Fatal]
  - Febrile infection [Recovered/Resolved]
  - Haematochezia [Recovered/Resolved]
  - Leukopenia [Not Recovered/Not Resolved]
  - Subclavian artery occlusion [Recovered/Resolved]
  - Upper gastrointestinal haemorrhage [Recovered/Resolved]
  - Asthenia [Recovered/Resolved]
  - Diarrhoea [Recovered/Resolved]
  - Decreased appetite [Recovered/Resolved]
  - Fatigue [Recovered/Resolved]
  - Skin ulcer [Recovered/Resolved]
  - Diarrhoea [Recovered/Resolved]
  - Stomatitis [Recovered/Resolved]
  - Pain in extremity [Recovered/Resolved]
  - Anaemia [Recovered/Resolved]

NARRATIVE: CASE EVENT DATE: 20191020
